FAERS Safety Report 5599161-0 (Version None)
Quarter: 2008Q1

REPORT INFORMATION
  Report Type: 
  Country: None (occurrence: None)
  Receive Date: 20080117
  Receipt Date: 20080107
  Transmission Date: 20080703
  Serious: Yes (Hospitalization)
  Sender: FDA-Public Use
  Company Number: 430030P04USA

PATIENT
  Age: 52 Year
  Sex: Female
  Weight: 61 kg

DRUGS (11)
  1. NOVANTRONE [Suspect]
     Indication: SECONDARY PROGRESSIVE MULTIPLE SCLEROSIS
     Dosage: INTRAVENOUS
     Route: 042
     Dates: start: 20010827, end: 20021202
  2. REBIF [Concomitant]
  3. FAMPRIDINE [Concomitant]
  4. SIMVASTATIN [Concomitant]
  5. ALENDRONATE SODIUM [Concomitant]
  6. CLONAZEPAM [Concomitant]
  7. TOLTERODINE TARTRATE [Concomitant]
  8. NITROFURANTOIN [Concomitant]
  9. DEXRAZOXANE [Concomitant]
  10. METHYLPREDNISOLONE SODIUM SUCCINATE [Concomitant]
  11. BETASERON [Concomitant]

REACTIONS (3)
  - ACUTE MYELOID LEUKAEMIA [None]
  - CLOSTRIDIUM DIFFICILE COLITIS [None]
  - URINARY TRACT INFECTION [None]
